FAERS Safety Report 22772966 (Version 2)
Quarter: 2024Q2

REPORT INFORMATION
  Report Type: Spontaneous
  Country: US (occurrence: US)
  Receive Date: 20230801
  Receipt Date: 20240417
  Transmission Date: 20240716
  Serious: Yes (Other)
  Sender: FDA-Public Use
  Company Number: US-PFIZER INC-202300263146

PATIENT
  Age: 11 Year
  Sex: Male

DRUGS (2)
  1. OXBRYTA [Suspect]
     Active Substance: VOXELOTOR
     Dosage: 300 MG ORAL SUSPENION 3 TABLET ONCE DAILY
     Route: 048
     Dates: start: 201901
  2. OXBRYTA [Suspect]
     Active Substance: VOXELOTOR
     Dosage: 300 MG ORAL SUSPENION 3 TABLET ONCE DAILY
     Route: 048
     Dates: start: 202208

REACTIONS (2)
  - Transfusion [Not Recovered/Not Resolved]
  - Product dose omission issue [Unknown]
